FAERS Safety Report 5826752-1 (Version None)
Quarter: 2008Q3

REPORT INFORMATION
  Report Type: 
  Country: None (occurrence: None)
  Receive Date: 20080728
  Receipt Date: 20080728
  Transmission Date: 20090109
  Serious: Yes (Life-Threatening, Other)
  Sender: FDA-Public Use
  Company Number: None

PATIENT
  Age: 46 Year
  Sex: Female
  Weight: 55.7924 kg

DRUGS (2)
  1. PAXIL [Suspect]
     Indication: DEPRESSION
     Dosage: 10 MG DAILY PO
     Route: 048
     Dates: start: 19991215, end: 20020625
  2. XANAX [Concomitant]

REACTIONS (12)
  - BALANCE DISORDER [None]
  - CONVULSION [None]
  - FEAR [None]
  - GAIT DISTURBANCE [None]
  - MAJOR DEPRESSION [None]
  - MENTAL DISORDER [None]
  - NAUSEA [None]
  - PARAESTHESIA [None]
  - PARANOIA [None]
  - THINKING ABNORMAL [None]
  - TREMOR [None]
  - VERTIGO [None]
